FAERS Safety Report 8145486-4 (Version None)
Quarter: 2012Q1

REPORT INFORMATION
  Report Type: 
  Country: None (occurrence: None)
  Receive Date: 20120217
  Receipt Date: 20111013
  Transmission Date: 20120608
  Serious: Yes (Hospitalization)
  Sender: FDA-Public Use
  Company Number: GB-B.I. PHARMACEUTICALS,INC./RIDGEFIELD-2012-BP-03033YA

PATIENT
  Age: 76 Year
  Sex: Male
  Weight: 76.2 kg

DRUGS (2)
  1. DOXYCYCLINE [Concomitant]
     Indication: PROSTATITIS
     Route: 048
     Dates: start: 20110711, end: 20110807
  2. FLOMAX [Suspect]
     Indication: PROSTATITIS
     Dosage: 100 MG
     Route: 048
     Dates: start: 20110711, end: 20110914

REACTIONS (2)
  - DEPRESSION [None]
  - ANXIETY [None]
